FAERS Safety Report 16065699 (Version 4)
Quarter: 2020Q1

REPORT INFORMATION
  Report Type: Spontaneous
  Country: IT (occurrence: IT)
  Receive Date: 20190313
  Receipt Date: 20200212
  Transmission Date: 20200409
  Serious: Yes (Other)
  Sender: FDA-Public Use
  Company Number: IT-AUROBINDO-AUR-APL-2019-012541

PATIENT
  Age: 51 Year
  Sex: Female

DRUGS (12)
  1. AMLODIPINE [Suspect]
     Active Substance: AMLODIPINE BESYLATE
     Indication: HYPERTENSION
  2. EUTIROX [Suspect]
     Active Substance: LEVOTHYROXINE SODIUM
     Indication: PRODUCT USED FOR UNKNOWN INDICATION
     Dosage: 75 MICROGRAM, ONCE A DAY
     Route: 065
  3. TRIATEC (CODEINE PHOSPHATE\PARACETAMOL) [Suspect]
     Active Substance: ACETAMINOPHEN\CODEINE PHOSPHATE
     Dosage: 5 MG, DAILY (1 TABLET FOR 2 /DIE)
     Route: 065
  4. JINARC [Suspect]
     Active Substance: TOLVAPTAN
     Indication: PRODUCT USED FOR UNKNOWN INDICATION
     Dosage: UNK,(45/15)
     Route: 065
  5. JINARC [Suspect]
     Active Substance: TOLVAPTAN
     Dosage: 60 MILLIGRAM
     Route: 065
  6. JINARC [Suspect]
     Active Substance: TOLVAPTAN
     Dosage: 45 MILLIGRAM
     Route: 065
     Dates: start: 20180901
  7. TRIATEC (CODEINE PHOSPHATE\PARACETAMOL) [Suspect]
     Active Substance: ACETAMINOPHEN\CODEINE PHOSPHATE
     Indication: PRODUCT USED FOR UNKNOWN INDICATION
     Dosage: 1 DOSAGE FORM, (1 DF, UNK (2.5 MG- 1 TABLET FOR 2 / DIE))
     Route: 065
  8. AMLODIPINE [Suspect]
     Active Substance: AMLODIPINE BESYLATE
     Indication: PRODUCT USED FOR UNKNOWN INDICATION
     Dosage: 5 MILLIGRAM, ONCE A DAY(1 TABLET A DAY)
     Route: 065
  9. DIDROGYL [Suspect]
     Active Substance: CALCIFEDIOL
     Indication: PRODUCT USED FOR UNKNOWN INDICATION
     Dosage: 25 GTT DROPS, EVERY WEEK
     Route: 065
  10. JINARC [Suspect]
     Active Substance: TOLVAPTAN
     Dosage: 15 MILLIGRAM
     Route: 065
     Dates: start: 20180901
  11. EUTIROX [Suspect]
     Active Substance: LEVOTHYROXINE SODIUM
     Indication: HYPOTHYROIDISM
  12. JINARC [Suspect]
     Active Substance: TOLVAPTAN
     Dosage: 30 MILLIGRAM
     Route: 065

REACTIONS (1)
  - Atrial fibrillation [Recovered/Resolved]

NARRATIVE: CASE EVENT DATE: 20190214
